FAERS Safety Report 4668425-7 (Version None)
Quarter: 2005Q2

REPORT INFORMATION
  Report Type: 
  Country: None (occurrence: None)
  Receive Date: 20050523
  Receipt Date: 20050224
  Transmission Date: 20051028
  Serious: Yes (Other)
  Sender: FDA-Public Use
  Company Number: PHEH2005US02454

PATIENT
  Sex: Female

DRUGS (4)
  1. ZOMETA [Suspect]
     Indication: BREAST CANCER STAGE IV
     Dosage: UNK, QMO
     Route: 042
     Dates: start: 20011130, end: 20040804
  2. AREDIA [Suspect]
     Indication: BREAST CANCER STAGE IV
     Dosage: UNK, QMO
     Route: 042
     Dates: start: 19981031, end: 20011031
  3. XELODA [Concomitant]
  4. CHEMOTHERAPEUTICS,OTHER [Concomitant]

REACTIONS (9)
  - ABSCESS [None]
  - IMPAIRED HEALING [None]
  - INFECTION [None]
  - OSTEONECROSIS [None]
  - PAIN [None]
  - SUBCUTANEOUS ABSCESS [None]
  - TOOTH EXTRACTION [None]
  - TOOTH REPAIR [None]
  - TOOTHACHE [None]
